FAERS Safety Report 4515316-8 (Version None)
Quarter: 2004Q4

REPORT INFORMATION
  Report Type: 
  Country: None (occurrence: None)
  Receive Date: 20041126
  Receipt Date: 20041110
  Transmission Date: 20050328
  Serious: Yes (Hospitalization)
  Sender: FDA-Public Use
  Company Number: 2004-0007565

PATIENT
  Age: 35 Year
  Sex: Male

DRUGS (11)
  1. TENOFOVIR DISOPROXIL FUMARATE (TENOFOVIR DISOPROXIL FUMARATE) [Suspect]
     Indication: HIV INFECTION
     Dates: start: 20040305, end: 20040719
  2. EFAVIRENZ (EFAVIRENZ) [Suspect]
     Indication: HIV INFECTION
     Dates: start: 20040305
  3. LAMIVUDINE (LAMIVUDINE) [Suspect]
     Indication: HIV INFECTION
     Dates: start: 20040305, end: 20040719
  4. COMBIVIR [Concomitant]
  5. TRAZODONE HCL [Concomitant]
  6. DIGOXIN [Concomitant]
  7. ENALAPRIL (ENALAPRIL) [Concomitant]
  8. METOPROLOL TARTRATE [Concomitant]
  9. WARFARIN SODIUM [Concomitant]
  10. ZOLPIDEM TARTRATE [Concomitant]
  11. FLUOXETINE [Concomitant]

REACTIONS (5)
  - AORTIC VALVE DISEASE [None]
  - CARDIAC VALVE REPLACEMENT COMPLICATION [None]
  - CARDIOMYOPATHY [None]
  - TREATMENT NONCOMPLIANCE [None]
  - VENTRICULAR FAILURE [None]
